FAERS Safety Report 5065947-4 (Version None)
Quarter: 2006Q3

REPORT INFORMATION
  Report Type: 
  Country: None (occurrence: None)
  Receive Date: 20060728
  Receipt Date: 20060728
  Transmission Date: 20061208
  Serious: Yes (Hospitalization)
  Sender: FDA-Public Use
  Company Number: None

PATIENT
  Age: 44 Year
  Sex: Male
  Weight: 96.6162 kg

DRUGS (12)
  1. DIOVAN [Suspect]
     Indication: HYPERTENSION
     Dosage: 160 MG PO DAILY
     Route: 048
  2. PRINZIDE [Suspect]
     Indication: HYPERTENSION
     Dosage: 20/25 PO DAILY
     Route: 048
  3. INSULIN [Concomitant]
  4. PRINZIDE [Concomitant]
  5. LIPITOR [Concomitant]
  6. PLAVIX [Concomitant]
  7. ASPIRIN [Concomitant]
  8. DIOVAN [Concomitant]
  9. HYDROCHLOROTHIAZIDE [Concomitant]
  10. LEVAQUIN [Concomitant]
  11. ALBUTEROL SPIROS [Concomitant]
  12. CLONIDINE [Concomitant]

REACTIONS (6)
  - AZOTAEMIA [None]
  - BLOOD CREATININE INCREASED [None]
  - BLOOD POTASSIUM INCREASED [None]
  - HYPOGLYCAEMIA [None]
  - NON-CARDIAC CHEST PAIN [None]
  - RENAL FAILURE CHRONIC [None]
